FAERS Safety Report 9239658 (Version 3)
Quarter: 2013Q2

REPORT INFORMATION
  Report Type: Spontaneous
  Country: US (occurrence: US)
  Receive Date: 20130418
  Receipt Date: 20130627
  Transmission Date: 20140414
  Serious: No
  Sender: FDA-Public Use
  Company Number: US-PFIZER INC-2013120395

PATIENT
  Age: 15 Year
  Sex: Male

DRUGS (1)
  1. ZOLOFT [Suspect]
     Dosage: 50 MG, UNK
     Dates: start: 2012

REACTIONS (1)
  - Chest pain [Unknown]
